FAERS Safety Report 8626051-9 (Version None)
Quarter: 2012Q3

REPORT INFORMATION
  Report Type: 
  Country: None (occurrence: None)
  Receive Date: 20120827
  Receipt Date: 20120817
  Transmission Date: 20120928
  Serious: Yes (Other)
  Sender: FDA-Public Use
  Company Number: US-ABBOTT-12P-163-0967682-00

PATIENT
  Age: 39 Year
  Sex: Female

DRUGS (14)
  1. METHOTREXATE [Suspect]
     Indication: PRODUCT USED FOR UNKNOWN INDICATION
  2. METHOTREXATE [Concomitant]
     Indication: PRODUCT USED FOR UNKNOWN INDICATION
  3. HORMONE INJECTIONS [Concomitant]
     Indication: INFERTILITY
  4. HUMIRA [Suspect]
     Dates: start: 20070801, end: 20081201
  5. METHOTREXATE [Suspect]
     Dates: end: 20120810
  6. ZYRTEC [Concomitant]
     Indication: HYPERSENSITIVITY
  7. PREDNISONE TAB [Concomitant]
     Indication: PRODUCT USED FOR UNKNOWN INDICATION
  8. BCP [Concomitant]
     Indication: PRODUCT USED FOR UNKNOWN INDICATION
  9. NASONEX [Concomitant]
     Indication: HYPERSENSITIVITY
  10. HUMIRA [Suspect]
     Dates: start: 20090801
  11. GENERIC FOR PRILOSEC [Concomitant]
     Indication: PRODUCT USED FOR UNKNOWN INDICATION
     Dosage: DAILY
     Route: 048
  12. HUMIRA [Suspect]
     Indication: RHEUMATOID ARTHRITIS
     Dates: start: 20060101, end: 20070101
  13. ALBUTEROL [Concomitant]
     Indication: ASTHMA
  14. SEMAR [Concomitant]
     Indication: OVARIAN DISORDER

REACTIONS (19)
  - ADVERSE DRUG REACTION [None]
  - JOINT STIFFNESS [None]
  - INCORRECT ROUTE OF DRUG ADMINISTRATION [None]
  - HORMONE LEVEL ABNORMAL [None]
  - WRONG TECHNIQUE IN DRUG USAGE PROCESS [None]
  - BREECH PRESENTATION [None]
  - UMBILICAL CORD AROUND NECK [None]
  - ARTHRALGIA [None]
  - INJECTION SITE HAEMATOMA [None]
  - INFERTILITY [None]
  - LUNG DISORDER [None]
  - INJECTION SITE INDURATION [None]
  - RHEUMATOID ARTHRITIS [None]
  - FALSE POSITIVE INVESTIGATION RESULT [None]
  - PREMATURE RUPTURE OF MEMBRANES [None]
  - AMNIOTIC FLUID VOLUME DECREASED [None]
  - INJECTION SITE PAIN [None]
  - DRUG EFFECT DECREASED [None]
  - MALAISE [None]
